FAERS Safety Report 8899368 (Version 1)
Quarter: 2012Q4

REPORT INFORMATION
  Report Type: 
  Country: US (occurrence: US)
  Receive Date: 20121109
  Receipt Date: 20121109
  Transmission Date: 20130627
  Serious: Yes (Hospitalization, Other)
  Sender: FDA-Public Use
  Company Number: US-AMGEN-USASP2012070900

PATIENT
  Sex: Female
  Weight: 3.14 kg

DRUGS (2)
  1. ENBREL [Suspect]
     Dosage: 50 mg, qwk
     Dates: end: 20121012
  2. HUMIRA [Concomitant]
     Dosage: UNK

REACTIONS (3)
  - Productive cough [Recovered/Resolved]
  - Choking [Recovered/Resolved]
  - Growth retardation [Unknown]
